FAERS Safety Report 8842735 (Version 5)
Quarter: 2013Q2

REPORT INFORMATION
  Report Type: Spontaneous
  Country: NO (occurrence: NO)
  Receive Date: 20121016
  Receipt Date: 20130426
  Transmission Date: 20140414
  Serious: Yes (Hospitalization, Other)
  Sender: FDA-Public Use
  Company Number: NO-JNJFOC-20121003270

PATIENT
  Age: 48 Year
  Sex: Female

DRUGS (4)
  1. STELARA [Suspect]
     Indication: PSORIASIS
     Route: 058
     Dates: start: 20120822
  2. STELARA [Suspect]
     Indication: PSORIASIS
     Dosage: NEXT INJECTION DUE IN MIDDLE OF DEC-2012
     Route: 058
     Dates: start: 20120922
  3. NEOTIGASON [Concomitant]
     Indication: RASH PUSTULAR
     Route: 065
     Dates: start: 20120612, end: 20121001
  4. NEOTIGASON [Concomitant]
     Indication: HYPERKERATOSIS
     Route: 065
     Dates: start: 20120612, end: 20121001

REACTIONS (3)
  - Dermatitis bullous [Recovered/Resolved]
  - Urinary tract infection [Unknown]
  - Pneumonia [Unknown]
